FAERS Safety Report 17768534 (Version 1)
Quarter: 2020Q2

REPORT INFORMATION
  Report Type: Spontaneous
  Country: LB (occurrence: LB)
  Receive Date: 20200512
  Receipt Date: 20200512
  Transmission Date: 20200714
  Serious: Yes (Other)
  Sender: FDA-Public Use
  Company Number: LB-SUN PHARMACEUTICAL INDUSTRIES LTD-2020RR-246586

PATIENT
  Age: 39 Year
  Sex: Male

DRUGS (3)
  1. CISPLATIN. [Suspect]
     Active Substance: CISPLATIN
     Indication: CHORIOCARCINOMA
     Dosage: 2 CYCLES
     Route: 065
     Dates: start: 201901
  2. GEMCITABINE. [Suspect]
     Active Substance: GEMCITABINE
     Indication: CHORIOCARCINOMA
     Dosage: 2 CYCLES
     Route: 065
     Dates: start: 201901
  3. CARBOPLATIN. [Suspect]
     Active Substance: CARBOPLATIN
     Indication: CHORIOCARCINOMA
     Dosage: UNK
     Route: 065
     Dates: start: 201906, end: 20190702

REACTIONS (3)
  - Disease progression [Unknown]
  - Neuropathy peripheral [Unknown]
  - Anaemia [Unknown]
